FAERS Safety Report 18819485 (Version 3)
Quarter: 2021Q2

REPORT INFORMATION
  Report Type: Spontaneous
  Country: JP (occurrence: JP)
  Receive Date: 20210202
  Receipt Date: 20210406
  Transmission Date: 20210717
  Serious: Yes (Hospitalization, Other)
  Sender: FDA-Public Use
  Company Number: JP-BRISTOL-MYERS SQUIBB COMPANY-BMS-2021-005879

PATIENT
  Age: 81 Year
  Sex: Male
  Weight: 60.8 kg

DRUGS (9)
  1. OPDIVO [Suspect]
     Active Substance: NIVOLUMAB
     Indication: NON-SMALL CELL LUNG CANCER
     Dosage: 360 MILLIGRAM, Q3WK (240 MG, 10 MG AND 20 MG)
     Route: 041
     Dates: start: 20210112
  2. SPIOLTO RESPIMAT [Concomitant]
     Active Substance: OLODATEROL HYDROCHLORIDE\TIOTROPIUM BROMIDE MONOHYDRATE
     Indication: PRODUCT USED FOR UNKNOWN INDICATION
     Dosage: 2 INHALATION ONE TIME (TOTAL 60 INHALATION)
     Route: 045
     Dates: start: 20210112
  3. MIYA?BM [Concomitant]
     Active Substance: CLOSTRIDIUM BUTYRICUM SPORES STRAIN M-55
     Indication: PRODUCT USED FOR UNKNOWN INDICATION
     Dosage: 2 DOSAGE FORM ( FOR 42 DAYS)
     Route: 048
     Dates: start: 20210112
  4. CALONAL [Concomitant]
     Active Substance: ACETAMINOPHEN
     Indication: PRODUCT USED FOR UNKNOWN INDICATION
     Dosage: 2 DOSAGE FORM
     Route: 048
     Dates: start: 20210112
  5. LOPEMIN [LOPERAMIDE HYDROCHLORIDE] [Concomitant]
     Active Substance: LOPERAMIDE HYDROCHLORIDE
     Indication: PRODUCT USED FOR UNKNOWN INDICATION
     Dosage: 1?2 CAPSULES ONE TIME (TOTAL FOR 10 TIMES)
     Route: 048
     Dates: start: 20210112
  6. SODIUM CHLORIDE. [Concomitant]
     Active Substance: SODIUM CHLORIDE
     Indication: NON-SMALL CELL LUNG CANCER
     Dosage: 350 MILLIGRAM
     Route: 041
     Dates: start: 20210112, end: 20210112
  7. CALONAL [Concomitant]
     Active Substance: ACETAMINOPHEN
     Indication: PYREXIA
     Dosage: UNK
     Route: 065
     Dates: start: 20210118
  8. YERVOY [Suspect]
     Active Substance: IPILIMUMAB
     Indication: NON-SMALL CELL LUNG CANCER
     Dosage: 60 MILLIGRAM, Q6WK
     Route: 041
     Dates: start: 20210112, end: 20210112
  9. RESTAMIN [DIPHENHYDRAMINE HYDROCHLORIDE] [Concomitant]
     Indication: PRODUCT USED FOR UNKNOWN INDICATION
     Dosage: 5 DOSAGE FORM
     Route: 048
     Dates: start: 20210112

REACTIONS (3)
  - Cholangitis acute [Recovering/Resolving]
  - Rhabdomyolysis [Recovering/Resolving]
  - Bile duct stone [Recovering/Resolving]

NARRATIVE: CASE EVENT DATE: 20210117
